FAERS Safety Report 23919285 (Version 3)
Quarter: 2025Q2

REPORT INFORMATION
  Report Type: Spontaneous
  Country: RO (occurrence: RO)
  Receive Date: 20240530
  Receipt Date: 20250404
  Transmission Date: 20250717
  Serious: Yes (Other)
  Sender: EMD SERONO INC
  Company Number: RO-Merck Healthcare KGaA-2024028107

PATIENT
  Age: 19 Year
  Sex: Female

DRUGS (1)
  1. CLADRIBINE [Suspect]
     Active Substance: CLADRIBINE
     Indication: Multiple sclerosis

REACTIONS (3)
  - Epilepsy [Unknown]
  - Suicide attempt [Unknown]
  - Psychotic disorder [Unknown]
